FAERS Safety Report 25755897 (Version 2)
Quarter: 2025Q3

REPORT INFORMATION
  Report Type: Spontaneous
  Country: US (occurrence: US)
  Receive Date: 20250903
  Receipt Date: 20250923
  Transmission Date: 20251020
  Serious: No
  Sender: BAYER HEALTHCARE PHARMACEUTICALS INC.
  Company Number: US-BAYER-2025A115232

PATIENT
  Age: 20 Year
  Sex: Female

DRUGS (1)
  1. MIRENA [Suspect]
     Active Substance: LEVONORGESTREL
     Indication: Intrauterine contraception
     Dosage: 20?G/DAY
     Route: 015
     Dates: start: 202508

REACTIONS (8)
  - Palmar-plantar erythrodysaesthesia syndrome [None]
  - Faeces hard [None]
  - Dyschezia [None]
  - Discomfort [None]
  - Constipation [None]
  - Diarrhoea [Not Recovered/Not Resolved]
  - Abdominal pain lower [None]
  - Loss of personal independence in daily activities [None]

NARRATIVE: CASE EVENT DATE: 20250101
